FAERS Safety Report 6238504-1 (Version None)
Quarter: 2009Q2

REPORT INFORMATION
  Report Type: 
  Country: None (occurrence: None)
  Receive Date: 20090617
  Receipt Date: 20080318
  Transmission Date: 20091009
  Serious: No
  Sender: FDA-Public Use
  Company Number: 273371

PATIENT
  Age: 68 Year
  Sex: Male

DRUGS (1)
  1. LEVEMIR [Suspect]
     Indication: DIABETES MELLITUS
     Dosage: 29 UYM QD AT NIGHT, SUBCUTANEOUS ; 25 IU, QD AT NIGHT, SUBCUTANEOUS
     Route: 058
     Dates: start: 20081201

REACTIONS (1)
  - BLOOD GLUCOSE FLUCTUATION [None]
